FAERS Safety Report 11610570 (Version 1)
Quarter: 2015Q4

REPORT INFORMATION
  Report Type: Other
  Country: GR (occurrence: GR)
  Receive Date: 20151008
  Receipt Date: 20151008
  Transmission Date: 20160304
  Serious: Yes (Hospitalization)
  Sender: FDA-Public Use
  Company Number: GR-LUPIN PHARMACEUTICALS INC.-2015-03096

PATIENT
  Age: 75 Year
  Sex: Male

DRUGS (4)
  1. CLARITHROMYCIN. [Suspect]
     Active Substance: CLARITHROMYCIN
     Indication: PYREXIA
     Dosage: 1000MG
     Route: 065
  2. QUETIAPINE [Interacting]
     Active Substance: QUETIAPINE
     Indication: ABNORMAL BEHAVIOUR
  3. CLARITHROMYCIN. [Interacting]
     Active Substance: CLARITHROMYCIN
     Dosage: 500MG
     Route: 065
  4. QUETIAPINE [Interacting]
     Active Substance: QUETIAPINE
     Indication: INSOMNIA
     Dosage: 125MG
     Route: 065

REACTIONS (2)
  - Neuroleptic malignant syndrome [Recovered/Resolved]
  - Drug interaction [Recovered/Resolved]
